FAERS Safety Report 9079441 (Version 1)
Quarter: 2013Q1

REPORT INFORMATION
  Report Type: Spontaneous
  Country: US (occurrence: US)
  Receive Date: 20130130
  Receipt Date: 20130130
  Transmission Date: 20140127
  Serious: No
  Sender: FDA-Public Use
  Company Number: US-ASTRAZENECA-2013SE00435

PATIENT
  Age: 74 Year
  Sex: Female
  Weight: 102.1 kg

DRUGS (2)
  1. ZESTRIL [Suspect]
     Indication: BLOOD PRESSURE
     Route: 048
  2. ZESTRIL [Suspect]
     Indication: BLOOD PRESSURE
     Dosage: GENERIC
     Route: 048

REACTIONS (2)
  - Hypertension [Unknown]
  - Drug ineffective [Unknown]
